FAERS Safety Report 13211420 (Version 2)
Quarter: 2017Q2

REPORT INFORMATION
  Report Type: Spontaneous
  Country: US (occurrence: US)
  Receive Date: 20170210
  Receipt Date: 20170606
  Transmission Date: 20170830
  Serious: No
  Sender: FDA-Public Use
  Company Number: US-GLAXOSMITHKLINE-US2017018815

PATIENT
  Age: 70 Year
  Sex: Female

DRUGS (3)
  1. BREO ELLIPTA [Suspect]
     Active Substance: FLUTICASONE FUROATE\VILANTEROL TRIFENATATE
     Dosage: UNK
  2. INCRUSE ELLIPTA [Suspect]
     Active Substance: UMECLIDINIUM BROMIDE
     Indication: CHRONIC OBSTRUCTIVE PULMONARY DISEASE
     Dosage: 1 MG/KG, UNK
     Route: 055
     Dates: start: 201612
  3. BREO ELLIPTA [Suspect]
     Active Substance: FLUTICASONE FUROATE\VILANTEROL TRIFENATATE
     Indication: BRONCHITIS CHRONIC
     Dosage: 1 PUFF(S), QD
     Route: 055
     Dates: start: 201612

REACTIONS (7)
  - Asthenia [Unknown]
  - Oral fungal infection [Not Recovered/Not Resolved]
  - Arthralgia [Unknown]
  - Oral candidiasis [Not Recovered/Not Resolved]
  - Myalgia [Unknown]
  - Limb injury [Not Recovered/Not Resolved]
  - Tendon injury [Not Recovered/Not Resolved]

NARRATIVE: CASE EVENT DATE: 20170503
